FAERS Safety Report 8188776-1 (Version None)
Quarter: 2012Q1

REPORT INFORMATION
  Report Type: 
  Country: None (occurrence: None)
  Receive Date: 20120306
  Receipt Date: 20120227
  Transmission Date: 20120608
  Serious: Yes (Hospitalization)
  Sender: FDA-Public Use
  Company Number: DK-B.I. PHARMACEUTICALS,INC./RIDGEFIELD-2011-SW-00518DB

PATIENT
  Sex: Male
  Weight: 85 kg

DRUGS (6)
  1. PRADAXA [Suspect]
     Indication: HIP ARTHROPLASTY
  2. PRADAXA [Suspect]
     Indication: ANTICOAGULANT THERAPY
     Dosage: 220 MG
     Route: 048
     Dates: start: 20111108, end: 20111115
  3. MORPHINE [Concomitant]
     Dates: start: 20110801
  4. PRADAXA [Suspect]
     Indication: THROMBOSIS PROPHYLAXIS
  5. IBUPROFEN [Concomitant]
     Dates: start: 20110801
  6. PANTOPRAZOL ^ACTAVIS^ [Concomitant]
     Dates: start: 20111108

REACTIONS (3)
  - INJECTION SITE HAEMATOMA [None]
  - HAEMORRHAGE [None]
  - HEPATIC ENZYME INCREASED [None]
